FAERS Safety Report 6969519-3 (Version None)
Quarter: 2010Q3

REPORT INFORMATION
  Report Type: 
  Country: None (occurrence: None)
  Receive Date: 20100907
  Receipt Date: 20100907
  Transmission Date: 20110219
  Serious: No
  Sender: FDA-Public Use
  Company Number: None

PATIENT
  Age: 48 Year
  Sex: Male
  Weight: 54.4316 kg

DRUGS (1)
  1. LISINOPRIL [Suspect]
     Dosage: 1 TABLIT 2 DAY PO
     Route: 048

REACTIONS (3)
  - PHOTOSENSITIVITY REACTION [None]
  - SYNCOPE [None]
  - VISUAL IMPAIRMENT [None]
